FAERS Safety Report 6076468-4 (Version None)
Quarter: 2009Q1

REPORT INFORMATION
  Report Type: 
  Country: None (occurrence: None)
  Receive Date: 20090213
  Receipt Date: 20090209
  Transmission Date: 20090719
  Serious: Yes (Other)
  Sender: FDA-Public Use
  Company Number: US-JNJFOC-20090202630

PATIENT
  Sex: Female

DRUGS (4)
  1. RISPERDAL [Suspect]
     Indication: ANTIDEPRESSANT THERAPY
     Route: 048
  2. LEXAPRO [Suspect]
     Indication: ANTIDEPRESSANT THERAPY
     Route: 048
  3. WELLBUTRIN [Suspect]
     Indication: ANTIDEPRESSANT THERAPY
     Route: 048
  4. SYNTHROID [Concomitant]
     Indication: HYPOTHYROIDISM
     Route: 048

REACTIONS (1)
  - HYPOACUSIS [None]
